FAERS Safety Report 24895257 (Version 1)
Quarter: 2025Q1

REPORT INFORMATION
  Report Type: Spontaneous
  Country: US (occurrence: None)
  Receive Date: 20250128
  Receipt Date: 20250128
  Transmission Date: 20250409
  Serious: No
  Sender: FDA-CTU
  Company Number: None

PATIENT
  Age: 37 Year
  Sex: Female
  Weight: 89.55 kg

DRUGS (3)
  1. TIRZEPATIDE [Suspect]
     Active Substance: TIRZEPATIDE
     Indication: Glycosylated haemoglobin increased
     Route: 058
     Dates: start: 20240415, end: 20241218
  2. TIRZEPATIDE [Suspect]
     Active Substance: TIRZEPATIDE
     Indication: Hyperinsulinaemia
  3. TIRZEPATIDE [Suspect]
     Active Substance: TIRZEPATIDE
     Indication: Obesity

REACTIONS (6)
  - Withdrawal syndrome [None]
  - Generalised anxiety disorder [None]
  - Restlessness [None]
  - Agoraphobia [None]
  - Depression [None]
  - Akathisia [None]

NARRATIVE: CASE EVENT DATE: 20250114
